FAERS Safety Report 9098782 (Version 1)
Quarter: 2013Q1

REPORT INFORMATION
  Report Type: Report from Study
  Country: US (occurrence: US)
  Receive Date: 20130213
  Receipt Date: 20130213
  Transmission Date: 20140127
  Serious: Yes (Hospitalization, Other)
  Sender: FDA-Public Use
  Company Number: US-TEVA-381050USA

PATIENT
  Age: 15 Year
  Sex: Female

DRUGS (1)
  1. CLARAVIS [Suspect]
     Route: 048

REACTIONS (3)
  - Suicidal ideation [Recovered/Resolved]
  - Affective disorder [Unknown]
  - Mental disorder [Unknown]
